FAERS Safety Report 7463930-2 (Version None)
Quarter: 2011Q2

REPORT INFORMATION
  Report Type: 
  Country: None (occurrence: None)
  Receive Date: 20110506
  Receipt Date: 20110428
  Transmission Date: 20111010
  Serious: Yes (Death, Other)
  Sender: FDA-Public Use
  Company Number: JP-GENZYME-THYM-1001818

PATIENT
  Sex: Female
  Weight: 58 kg

DRUGS (1)
  1. THYMOGLOBULIN [Suspect]
     Indication: APLASTIC ANAEMIA
     Dosage: 200 MG, QD
     Route: 042
     Dates: start: 20100419, end: 20100423

REACTIONS (2)
  - PANCYTOPENIA [None]
  - PNEUMONIA STAPHYLOCOCCAL [None]
